FAERS Safety Report 14216590 (Version 1)
Quarter: 2017Q4

REPORT INFORMATION
  Report Type: Spontaneous
  Country: US (occurrence: US)
  Receive Date: 20171122
  Receipt Date: 20171122
  Transmission Date: 20180321
  Serious: Yes (Other)
  Sender: FDA-Public Use
  Company Number: US-PFIZER INC-2017497753

PATIENT
  Age: 50 Year
  Sex: Female
  Weight: 99.77 kg

DRUGS (1)
  1. LYRICA [Suspect]
     Active Substance: PREGABALIN
     Indication: ANXIETY
     Dosage: UNK
     Dates: start: 2016

REACTIONS (4)
  - Drug effective for unapproved indication [Unknown]
  - Weight increased [Unknown]
  - Intentional product use issue [Unknown]
  - Drug dependence [Unknown]

NARRATIVE: CASE EVENT DATE: 2016
